FAERS Safety Report 11872382 (Version 1)
Quarter: 2015Q4

REPORT INFORMATION
  Report Type: Spontaneous
  Country: US (occurrence: US)
  Receive Date: 20151228
  Receipt Date: 20151228
  Transmission Date: 20160305
  Serious: Yes (Other)
  Sender: FDA-Public Use
  Company Number: US-PFIZER INC-2015464977

PATIENT
  Age: 50 Year
  Sex: Female
  Weight: 68 kg

DRUGS (3)
  1. LYRICA [Suspect]
     Active Substance: PREGABALIN
     Dosage: 100 MG, DAILY
  2. LYRICA [Suspect]
     Active Substance: PREGABALIN
     Dosage: 50 MG, DAILY
     Dates: end: 20151220
  3. LYRICA [Suspect]
     Active Substance: PREGABALIN
     Dosage: 4-5 50 MG A DAY BEFORE SURGERY.

REACTIONS (8)
  - Diarrhoea [Unknown]
  - Asthenia [Unknown]
  - Intervertebral disc protrusion [Unknown]
  - Insomnia [Unknown]
  - Malaise [Unknown]
  - Abdominal discomfort [Unknown]
  - Influenza like illness [Unknown]
  - Decreased appetite [Unknown]
